FAERS Safety Report 6442402-8 (Version None)
Quarter: 2009Q4

REPORT INFORMATION
  Report Type: 
  Country: None (occurrence: None)
  Receive Date: 20091112
  Receipt Date: 20091028
  Transmission Date: 20100525
  Serious: Yes (Hospitalization)
  Sender: FDA-Public Use
  Company Number: 19000IL09JPN

PATIENT
  Age: 30 Year
  Sex: Female

DRUGS (4)
  1. MENOTROPINS [Suspect]
     Indication: ARTIFICIAL INSEMINATION BY PARTNER
  2. MENOTROPINS [Suspect]
     Indication: INFERTILITY
  3. CHORIONIC GONADOTROPIN (CHRONICI GONADOTROPHIN) [Suspect]
     Indication: ARTIFICIAL INSEMINATION BY PARTNER
  4. CHORIONIC GONADOTROPIN (CHRONICI GONADOTROPHIN) [Suspect]
     Indication: INFERTILITY

REACTIONS (8)
  - ABDOMINAL PAIN LOWER [None]
  - ADHESION [None]
  - DRUG EXPOSURE DURING PREGNANCY [None]
  - ECTOPIC PREGNANCY [None]
  - FALLOPIAN TUBE DISORDER [None]
  - GENITAL HAEMORRHAGE [None]
  - INTRA-ABDOMINAL HAEMORRHAGE [None]
  - PELVIC FLUID COLLECTION [None]
